FAERS Safety Report 7986166-5 (Version None)
Quarter: 2011Q4

REPORT INFORMATION
  Report Type: 
  Country: None (occurrence: None)
  Receive Date: 20111216
  Receipt Date: 20111208
  Transmission Date: 20120403
  Serious: Yes (Death, Hospitalization)
  Sender: FDA-Public Use
  Company Number: US-GLAXOSMITHKLINE-A0880804A

PATIENT
  Sex: Female

DRUGS (1)
  1. AVANDIA [Suspect]
     Indication: DIABETES MELLITUS
     Dosage: 8MG PER DAY
     Route: 048
     Dates: start: 20030101, end: 20040101

REACTIONS (15)
  - COMA HEPATIC [None]
  - BLOOD GLUCOSE FLUCTUATION [None]
  - DIABETES MELLITUS INADEQUATE CONTROL [None]
  - RENAL FAILURE ACUTE [None]
  - NAUSEA [None]
  - URINARY TRACT INFECTION [None]
  - ABDOMINAL PAIN [None]
  - GAIT DISTURBANCE [None]
  - MUSCULAR WEAKNESS [None]
  - PANCREATIC CARCINOMA [None]
  - METASTASES TO LIVER [None]
  - PANCREATIC DISORDER [None]
  - HEPATIC FAILURE [None]
  - CONFUSIONAL STATE [None]
  - HEPATIC ENCEPHALOPATHY [None]
